FAERS Safety Report 14322199 (Version 35)
Quarter: 2019Q3

REPORT INFORMATION
  Report Type: Report from Study
  Country: CA (occurrence: CA)
  Receive Date: 20171225
  Receipt Date: 20190923
  Transmission Date: 20191004
  Serious: Yes (Hospitalization, Other)
  Sender: FDA-Public Use
  Company Number: PHHY2015CA046896

PATIENT
  Age: 82 Year
  Sex: Female

DRUGS (7)
  1. SANDOSTATIN LAR DEPOT [Suspect]
     Active Substance: OCTREOTIDE ACETATE
     Dosage: 10 MG, QMO
     Route: 030
     Dates: start: 20150415, end: 20150415
  2. BISOPROLOL [Concomitant]
     Active Substance: BISOPROLOL
     Indication: PRODUCT USED FOR UNKNOWN INDICATION
     Dosage: 5 MG, UNK
     Route: 065
  3. INNOHEP [Concomitant]
     Active Substance: TINZAPARIN SODIUM
     Indication: PRODUCT USED FOR UNKNOWN INDICATION
     Route: 065
  4. SANDOSTATIN LAR DEPOT [Suspect]
     Active Substance: OCTREOTIDE ACETATE
     Indication: MICROCYTIC ANAEMIA
     Dosage: 20 MG, QMO
     Route: 030
     Dates: start: 20150415
  5. SANDOSTATIN LAR DEPOT [Suspect]
     Active Substance: OCTREOTIDE ACETATE
     Dosage: 20 MG, QMO (ONCE A MONTH)
     Route: 030
     Dates: start: 20150511
  6. SANDOSTATIN [Suspect]
     Active Substance: OCTREOTIDE ACETATE
     Indication: MICROCYTIC ANAEMIA
     Dosage: 50 UG, QD
     Route: 058
     Dates: start: 20141006, end: 20141223
  7. CODEINE PHOSPHATE [Suspect]
     Active Substance: CODEINE PHOSPHATE
     Indication: PRODUCT USED FOR UNKNOWN INDICATION
     Dosage: UNK
     Route: 065

REACTIONS (38)
  - Blood pressure systolic increased [Unknown]
  - Oedema peripheral [Unknown]
  - Heart rate decreased [Unknown]
  - Chest pain [Unknown]
  - Blood pressure increased [Unknown]
  - Pain in extremity [Not Recovered/Not Resolved]
  - Increased bronchial secretion [Unknown]
  - Gait disturbance [Unknown]
  - Asthenia [Unknown]
  - Vomiting [Unknown]
  - Dizziness [Unknown]
  - Headache [Unknown]
  - Haemoglobin decreased [Unknown]
  - Injection site pain [Unknown]
  - Back pain [Unknown]
  - Dyspnoea [Unknown]
  - Feeling hot [Unknown]
  - Arthralgia [Unknown]
  - Muscle fatigue [Unknown]
  - Decreased appetite [Unknown]
  - Product use in unapproved indication [Unknown]
  - Thrombophlebitis [Unknown]
  - Body temperature decreased [Unknown]
  - Malaise [Unknown]
  - Abdominal pain [Unknown]
  - Anxiety [Unknown]
  - Injection site mass [Not Recovered/Not Resolved]
  - Blood pressure diastolic decreased [Unknown]
  - Cough [Unknown]
  - Gastroenteritis [Unknown]
  - White blood cell count increased [Unknown]
  - Haemorrhage [Unknown]
  - Bronchitis [Unknown]
  - Hypertension [Unknown]
  - Renal failure [Unknown]
  - Cerebral haemorrhage [Unknown]
  - Dementia Alzheimer^s type [Unknown]
  - Abdominal pain upper [Unknown]

NARRATIVE: CASE EVENT DATE: 20150415
